FAERS Safety Report 8595934 (Version 2)
Quarter: 2013Q3

REPORT INFORMATION
  Report Type: Spontaneous
  Country: US (occurrence: US)
  Receive Date: 20120605
  Receipt Date: 20130723
  Transmission Date: 20140515
  Serious: Yes (Hospitalization, Other)
  Sender: FDA-Public Use
  Company Number: US-ASTRAZENECA-2012SE35463

PATIENT
  Age: 21077 Day
  Sex: Female

DRUGS (16)
  1. NEXIUM [Suspect]
     Indication: GASTRIC ULCER
     Route: 048
     Dates: start: 2005, end: 2010
  2. NEXIUM [Suspect]
     Indication: GASTROOESOPHAGEAL REFLUX DISEASE
     Route: 048
     Dates: start: 2005, end: 2010
  3. PROTONIX [Concomitant]
  4. PEPCID [Concomitant]
  5. TAGAMET [Concomitant]
  6. TUMS [Concomitant]
     Dosage: AS NEEDED
  7. ALKA SELTZER [Concomitant]
     Dosage: AS NEEDED
  8. SYNTHROID [Concomitant]
     Indication: THYROID DISORDER
  9. NORVASC [Concomitant]
  10. LIPOFEN [Concomitant]
  11. COLONOPIN [Concomitant]
  12. CATAPRESS HCL [Concomitant]
  13. ESTRADIOL [Concomitant]
  14. ORTHENADRINE [Concomitant]
  15. NITROSURANTOIN MCR [Concomitant]
  16. EFFEXOR [Concomitant]
     Dosage: 150 AND 75 MG

REACTIONS (10)
  - Femur fracture [Unknown]
  - Arthropathy [Unknown]
  - Fall [Unknown]
  - Osteoporosis [Unknown]
  - Gastrointestinal disorder [Unknown]
  - Arthritis [Unknown]
  - Chronic obstructive pulmonary disease [Unknown]
  - Cataract [Unknown]
  - Vitamin D deficiency [Unknown]
  - Depression [Unknown]
